FAERS Safety Report 5824582-8 (Version None)
Quarter: 2008Q3

REPORT INFORMATION
  Report Type: 
  Country: None (occurrence: None)
  Receive Date: 20080728
  Receipt Date: 20080201
  Transmission Date: 20090109
  Serious: No
  Sender: FDA-Public Use
  Company Number: US-BAYER-200810521BCC

PATIENT
  Age: 29 Year
  Sex: Male
  Weight: 77 kg

DRUGS (4)
  1. ALEVE [Suspect]
     Indication: OROPHARYNGEAL PAIN
     Dosage: AS USED: 440 MG  UNIT DOSE: 220 MG
     Route: 048
     Dates: start: 20080131, end: 20080131
  2. ALEVE [Suspect]
     Dosage: AS USED: 440 MG  UNIT DOSE: 220 MG
     Route: 048
     Dates: start: 20080201
  3. ZOCOR [Concomitant]
  4. ANTIBIOTIC [Concomitant]

REACTIONS (1)
  - STOMACH DISCOMFORT [None]
